FAERS Safety Report 23991427 (Version 2)
Quarter: 2025Q1

REPORT INFORMATION
  Report Type: Spontaneous
  Country: JP (occurrence: JP)
  Receive Date: 20240619
  Receipt Date: 20250319
  Transmission Date: 20250409
  Serious: Yes (Other)
  Sender: TAKEDA
  Company Number: JP-TEVA-VS-3210595

PATIENT
  Age: 82 Year
  Sex: Male

DRUGS (8)
  1. ASPIRIN\LANSOPRAZOLE [Suspect]
     Active Substance: ASPIRIN\LANSOPRAZOLE
     Indication: Aortic valve disease mixed
     Dosage: 1 DOSAGE FORM, QD =100MG ASPIRIN + 15MG LANSOPRAZOLE
     Dates: start: 202401, end: 20240518
  2. OLMESARTAN MEDOXOMIL [Concomitant]
     Active Substance: OLMESARTAN MEDOXOMIL
     Dosage: 1 DOSAGE FORM, QD, OD TABLETS 20MG
  3. POLAPREZINC [Concomitant]
     Active Substance: POLAPREZINC
     Dosage: 1 DOSAGE FORM, QOD, TABLETS 75
  4. BROTIZOLAM [Concomitant]
     Active Substance: BROTIZOLAM
     Dosage: 1 DOSAGE FORM, QD, TABLETS 0.25MG
  5. DRAMAMINE [Concomitant]
     Active Substance: DIMENHYDRINATE
     Dosage: 1 DOSAGE FORM, QD, TABLETS 50MG
  6. Alosenn [Concomitant]
     Dosage: 0.5 GRAM, QD, GRANULES
  7. Depas [Concomitant]
     Dosage: 1 DOSAGE FORM, QOD, TABLETS 0.5 MG
  8. TOPIROXOSTAT [Concomitant]
     Active Substance: TOPIROXOSTAT
     Dosage: 1 DOSAGE FORM, QD, TABLETS 40MG

REACTIONS (1)
  - Renal failure [Recovering/Resolving]

NARRATIVE: CASE EVENT DATE: 20240516
